FAERS Safety Report 4781698-5 (Version None)
Quarter: 2005Q3

REPORT INFORMATION
  Report Type: 
  Country: None (occurrence: None)
  Receive Date: 20050927
  Receipt Date: 20050914
  Transmission Date: 20060218
  Serious: Yes (Other)
  Sender: FDA-Public Use
  Company Number: 2005S1000195

PATIENT
  Age: 64 Year

DRUGS (7)
  1. CUBICIN [Suspect]
     Indication: BACTERAEMIA
     Dosage: 400 MG/MG;Q48H;IV
     Route: 042
  2. CUBICIN [Suspect]
     Indication: STAPHYLOCOCCAL INFECTION
     Dosage: 400 MG/MG;Q48H;IV
     Route: 042
  3. VANCOMYCIN [Concomitant]
  4. PIPERACILLIN SODIUM/TAZOBACTIM SODIUM [Concomitant]
  5. GENTAMICIN [Concomitant]
  6. RIFAMPICIN [Concomitant]
  7. OXACILLIN [Concomitant]

REACTIONS (2)
  - PNEUMONIA ASPIRATION [None]
  - RESPIRATORY DISTRESS [None]
